FAERS Safety Report 20895908 (Version 1)
Quarter: 2022Q2

REPORT INFORMATION
  Report Type: Spontaneous
  Country: FR (occurrence: FR)
  Receive Date: 20220531
  Receipt Date: 20220531
  Transmission Date: 20220721
  Serious: Yes (Hospitalization, Other)
  Sender: FDA-Public Use
  Company Number: FR-NOVARTISPH-NVSC2022FR121968

PATIENT
  Age: 30 Year
  Sex: Female

DRUGS (2)
  1. DEFERASIROX [Suspect]
     Active Substance: DEFERASIROX
     Indication: Haemochromatosis
     Dosage: UNK
     Route: 065
  2. DEFERASIROX [Suspect]
     Active Substance: DEFERASIROX
     Indication: Iron overload

REACTIONS (1)
  - Yersinia infection [Recovered/Resolved]
